FAERS Safety Report 7114628-1 (Version None)
Quarter: 2010Q4

REPORT INFORMATION
  Report Type: 
  Country: None (occurrence: None)
  Receive Date: 20101121
  Receipt Date: 20101108
  Transmission Date: 20110411
  Serious: Yes (Hospitalization, Other)
  Sender: FDA-Public Use
  Company Number: TR-ELI_LILLY_AND_COMPANY-TR201011002191

PATIENT
  Age: 41 Year
  Sex: Male

DRUGS (2)
  1. PROZAC [Suspect]
     Indication: MAJOR DEPRESSION
     Dosage: 20 MG, DAILY (1/D)
  2. LAMOTRIGINE [Concomitant]
     Indication: MAJOR DEPRESSION
     Dosage: 50 MG, DAILY (1/D)

REACTIONS (5)
  - ALANINE AMINOTRANSFERASE INCREASED [None]
  - ASPARTATE AMINOTRANSFERASE INCREASED [None]
  - DRUG INTERACTION [None]
  - FATIGUE [None]
  - STEVENS-JOHNSON SYNDROME [None]
